FAERS Safety Report 9770025 (Version 2)
Quarter: 2013Q4

REPORT INFORMATION
  Report Type: Spontaneous
  Country: US (occurrence: US)
  Receive Date: 20131218
  Receipt Date: 20131218
  Transmission Date: 20140711
  Serious: No
  Sender: FDA-Public Use
  Company Number: US-VERTEX PHARMACEUTICALS INC-AE-2011-000681

PATIENT
  Age: 51 Year
  Sex: Male
  Weight: 104.55 kg

DRUGS (3)
  1. INCIVEK [Suspect]
     Indication: HEPATITIS C
     Route: 048
     Dates: start: 20110720, end: 20110729
  2. PEGASYS [Concomitant]
     Indication: HEPATITIS C
     Dates: start: 20110720, end: 20110720
  3. RIBASPHERE [Concomitant]
     Indication: HEPATITIS C
     Dates: start: 20110720, end: 20110729

REACTIONS (4)
  - Pain [Not Recovered/Not Resolved]
  - Injection site reaction [Not Recovered/Not Resolved]
  - Rash pustular [Recovered/Resolved]
  - Anorectal disorder [Unknown]
